FAERS Safety Report 24885112 (Version 1)
Quarter: 2025Q1

REPORT INFORMATION
  Report Type: Spontaneous
  Country: CN (occurrence: CN)
  Receive Date: 20250124
  Receipt Date: 20250124
  Transmission Date: 20250408
  Serious: Yes (Other)
  Sender: PFIZER
  Company Number: CN-PFIZER INC-PV202500009588

PATIENT
  Age: 94 Year
  Sex: Male
  Weight: 40 kg

DRUGS (1)
  1. VFEND [Suspect]
     Active Substance: VORICONAZOLE
     Indication: Symptomatic treatment
     Dosage: 200 MG, 2X/DAY
     Route: 041
     Dates: start: 20241011, end: 20241013

REACTIONS (2)
  - Delirium [Recovering/Resolving]
  - Neurotoxicity [Recovering/Resolving]

NARRATIVE: CASE EVENT DATE: 20241013
